FAERS Safety Report 6358938-4 (Version None)
Quarter: 2009Q3

REPORT INFORMATION
  Report Type: 
  Country: None (occurrence: None)
  Receive Date: 20090914
  Receipt Date: 20090902
  Transmission Date: 20100115
  Serious: Yes (Other)
  Sender: FDA-Public Use
  Company Number: GXKR2009GB09850

PATIENT
  Age: 67 Year
  Sex: Female

DRUGS (20)
  1. WARFARIN SODIUM [Suspect]
     Dosage: 3 MG, ORAL ; 1 MG, ORAL
     Route: 048
     Dates: start: 20040623
  2. WARFARIN SODIUM [Suspect]
     Dosage: 3 MG, ORAL ; 1 MG, ORAL
     Route: 048
     Dates: start: 20050510
  3. SINGULAIR [Suspect]
     Indication: ASTHMA
     Dosage: 10 MG, PRN, ORAL
     Route: 048
     Dates: start: 20090723
  4. ADCAL-D3 (CALCIUM CARBONATE, COLECALCIFEROL) [Concomitant]
  5. AZITHROMYCIN [Concomitant]
  6. BENZOCAINE (BENZOCAINE) [Concomitant]
  7. CARBOCISTEINE (CARBOCISTEINE) [Concomitant]
  8. CLARITHROMYCIN [Concomitant]
  9. CO-AMILOFRUSE (AMILORIDE HYDROCHLORIDE, FUROSEMIDE) [Concomitant]
  10. CODEINE SUL TAB [Concomitant]
  11. DIAZEPAM [Concomitant]
  12. FYBOGEL (ISPHAGHULA, PLANTAGO OVATA) [Concomitant]
  13. LEVOTHYROXINE SODIUM [Concomitant]
  14. MONTELUKAST SODIUM [Concomitant]
  15. PREDNISOLONE [Concomitant]
  16. RISEDRONATE SODIUM [Concomitant]
  17. BUDESONIDE W/FORMOTEROL FUMARATE (BUDESONNIDE, FORMOTEROL FUMARATE) [Concomitant]
  18. TERBUTALINE SULFATE [Concomitant]
  19. LEVOTHYROXINE SODIUM [Concomitant]
  20. ZOLPIDEM TARTRATE [Concomitant]

REACTIONS (2)
  - DRUG INTERACTION [None]
  - INTERNATIONAL NORMALISED RATIO INCREASED [None]
